FAERS Safety Report 9548215 (Version 1)
Quarter: 2013Q3

REPORT INFORMATION
  Report Type: Spontaneous
  Country: US (occurrence: None)
  Receive Date: 20130702
  Receipt Date: 20130702
  Transmission Date: 20140515
  Serious: Yes (Hospitalization)
  Sender: FDA-Public Use
  Company Number: SYM-2013-04895

PATIENT
  Age: 48 Year
  Sex: Male

DRUGS (7)
  1. VENLAFAXINE [Suspect]
  2. BUPROPION(BUPROPION)(SUSTAINED ACTION)(BUPROPION) [Suspect]
     Indication: ANXIETY
  3. HYDROXYZINE [Suspect]
     Dosage: 10 MG 3 IN 1 D AS NEEDED.
  4. CLONAZEPAM [Suspect]
  5. OLANZAPINE(OLANZAPINE)(OLANZAPINE) [Concomitant]
  6. LORAZEPAM(LORAZEPAM)(LORAZEPAM) [Concomitant]
  7. METOPROLOL TARTRATE [Suspect]

REACTIONS (2)
  - Psychotic disorder [None]
  - Overdose [None]
